FAERS Safety Report 5187193-6 (Version None)
Quarter: 2006Q4

REPORT INFORMATION
  Report Type: 
  Country: None (occurrence: None)
  Receive Date: 20061214
  Receipt Date: 20061201
  Transmission Date: 20070319
  Serious: Yes (Other)
  Sender: FDA-Public Use
  Company Number: 2006150606

PATIENT
  Age: 62 Year

DRUGS (4)
  1. LYRICA [Suspect]
     Indication: PAIN
     Dosage: 600 MG (300 MG, 2 IN 1 D), ORAL
     Route: 048
     Dates: end: 20061019
  2. AMANTADINE HCL [Concomitant]
  3. DICLOFENAC SODIUM [Concomitant]
  4. MORPHINE [Concomitant]

REACTIONS (2)
  - BLOOD CREATINE PHOSPHOKINASE INCREASED [None]
  - RENAL IMPAIRMENT [None]
